FAERS Safety Report 8856910 (Version 1)
Quarter: 2012Q4

REPORT INFORMATION
  Report Type: Spontaneous
  Country: US (occurrence: None)
  Receive Date: 20121019
  Receipt Date: 20121019
  Transmission Date: 20130627
  Serious: Yes (Hospitalization, Disabling, Other)
  Sender: FDA-Public Use
  Company Number: AXC-2012-000464

PATIENT
  Sex: Male
  Weight: 62.1 kg

DRUGS (2)
  1. PANCREATIC ENZYMES [Suspect]
  2. ZENPEP [Suspect]
     Route: 048
     Dates: end: 201208

REACTIONS (3)
  - Cerebrovascular accident [None]
  - Speech disorder [None]
  - Candidiasis [None]
